FAERS Safety Report 4388049-9 (Version None)
Quarter: 2004Q2

REPORT INFORMATION
  Report Type: 
  Country: None (occurrence: None)
  Receive Date: 20040607
  Receipt Date: 20030716
  Transmission Date: 20050107
  Serious: Yes (Other)
  Sender: FDA-Public Use
  Company Number: 328971

PATIENT

DRUGS (7)
  1. ACCUTANE [Suspect]
     Dosage: ORAL
     Route: 048
     Dates: start: 20020615, end: 20021202
  2. NA [Suspect]
     Dosage: NA
  3. PLAQUENIL [Concomitant]
  4. ORTHO-CYCLEN (ETHINYL ESTRADIOL/NRGESTIMATE) [Concomitant]
  5. MINOCIN (MINOCYCLINE HYDROCHLORIDE) [Concomitant]
  6. ORTHO EVRA (ETHINYL ESTRADIOL/NORGESTREL) [Concomitant]
  7. LEVONORGESTREL [Concomitant]

REACTIONS (1)
  - ABORTION INDUCED [None]
